FAERS Safety Report 25795787 (Version 3)
Quarter: 2025Q4

REPORT INFORMATION
  Report Type: Spontaneous
  Country: CA (occurrence: CA)
  Receive Date: 20250912
  Receipt Date: 20251031
  Transmission Date: 20260118
  Serious: Yes (Hospitalization, Other)
  Sender: CELLTRION
  Company Number: CA-PFIZER INC-202500175646

PATIENT

DRUGS (2)
  1. INFLECTRA [Suspect]
     Active Substance: INFLIXIMAB-DYYB
     Indication: Psoriatic arthropathy
     Dosage: 800 MG, EVERY 6 WEEKS
     Route: 042
     Dates: start: 20250716
  2. INFLECTRA [Suspect]
     Active Substance: INFLIXIMAB-DYYB
     Dosage: 800 MG, AFTER 9 WEEKS AND 5 DAYS, (800 MG EVERY 6 WEEKS)
     Route: 042
     Dates: start: 20250922

REACTIONS (4)
  - Road traffic accident [Unknown]
  - Joint injury [Recovering/Resolving]
  - Joint effusion [Recovering/Resolving]
  - Thrombosis [Unknown]

NARRATIVE: CASE EVENT DATE: 20250101
